FAERS Safety Report 10716503 (Version 1)
Quarter: 2015Q1

REPORT INFORMATION
  Report Type: Spontaneous
  Country: US (occurrence: US)
  Receive Date: 20150116
  Receipt Date: 20150116
  Transmission Date: 20150721
  Serious: Yes (Other)
  Sender: FDA-Public Use
  Company Number: US-JNJFOC-20150104450

PATIENT
  Age: 41 Year
  Sex: Female
  Weight: 102.97 kg

DRUGS (3)
  1. BYETTA [Concomitant]
     Active Substance: EXENATIDE
     Indication: TYPE 2 DIABETES MELLITUS
     Route: 065
  2. INVOKANA [Suspect]
     Active Substance: CANAGLIFLOZIN
     Indication: TYPE 2 DIABETES MELLITUS
     Route: 048
     Dates: start: 201401
  3. PROBIOTICS [Concomitant]
     Active Substance: PROBIOTICS NOS
     Indication: FUNGAL INFECTION
     Route: 065

REACTIONS (2)
  - Fungal infection [Unknown]
  - Weight decreased [Not Recovered/Not Resolved]
